FAERS Safety Report 10229042 (Version 1)
Quarter: 2014Q2

REPORT INFORMATION
  Report Type: Spontaneous
  Country: US (occurrence: US)
  Receive Date: 20140610
  Receipt Date: 20140610
  Transmission Date: 20141212
  Serious: No
  Sender: FDA-Public Use
  Company Number: US-009507513-1405USA011211

PATIENT
  Age: 62 Year
  Sex: Male

DRUGS (4)
  1. PEGINTRON [Suspect]
     Dosage: 150 MCG/0.5ML, REDIPEN, QW
     Route: 058
  2. RIBAPAK [Suspect]
     Dosage: 1200/DAY
  3. SOVALDI [Suspect]
  4. NEXIUM [Concomitant]

REACTIONS (1)
  - Influenza like illness [Unknown]
